FAERS Safety Report 18254313 (Version 1)
Quarter: 2020Q3

REPORT INFORMATION
  Report Type: Other
  Country: PT (occurrence: PT)
  Receive Date: 20200911
  Receipt Date: 20200911
  Transmission Date: 20201104
  Serious: Yes (Hospitalization)
  Sender: FDA-Public Use
  Company Number: PT-ROCHE-2672259

PATIENT
  Age: 83 Year
  Sex: Female

DRUGS (18)
  1. FUROSEMIDE. [Suspect]
     Active Substance: FUROSEMIDE
     Indication: PRODUCT USED FOR UNKNOWN INDICATION
     Dosage: 80 MILLIGRAM, QD (40 MG, BID)
     Route: 065
  2. ENOXAPARIN [Concomitant]
     Active Substance: ENOXAPARIN
     Indication: PRODUCT USED FOR UNKNOWN INDICATION
     Dosage: UNK
     Route: 065
  3. CARVEDILOL. [Suspect]
     Active Substance: CARVEDILOL
     Dosage: 6.25 MG, BID
     Route: 065
  4. FUROSEMIDE. [Concomitant]
     Active Substance: FUROSEMIDE
     Indication: PRODUCT USED FOR UNKNOWN INDICATION
  5. FOLATE [Suspect]
     Active Substance: FOLATE SODIUM
     Indication: PRODUCT USED FOR UNKNOWN INDICATION
     Route: 065
  6. ATORVASTATIN [Suspect]
     Active Substance: ATORVASTATIN
     Indication: PRODUCT USED FOR UNKNOWN INDICATION
     Route: 065
  7. SPIRONOLACTONE. [Concomitant]
     Active Substance: SPIRONOLACTONE
     Indication: PRODUCT USED FOR UNKNOWN INDICATION
  8. CARVEDILOL. [Suspect]
     Active Substance: CARVEDILOL
     Indication: PRODUCT USED FOR UNKNOWN INDICATION
     Route: 065
  9. HYDROXYZINE [Suspect]
     Active Substance: HYDROXYZINE HYDROCHLORIDE
     Indication: PRURITUS
     Dosage: 75 MILLIGRAM, QD (25 MG, TID)
     Route: 065
  10. HYDROXYZINE [Suspect]
     Active Substance: HYDROXYZINE HYDROCHLORIDE
     Dosage: 25 MILLIGRAM, BID
     Route: 065
  11. FERROUS SULFATE. [Suspect]
     Active Substance: FERROUS SULFATE
     Indication: PRODUCT USED FOR UNKNOWN INDICATION
     Route: 065
  12. DIAZEPAM. [Suspect]
     Active Substance: DIAZEPAM
     Indication: PRODUCT USED FOR UNKNOWN INDICATION
     Route: 065
  13. ALLOPURINOL. [Suspect]
     Active Substance: ALLOPURINOL
     Indication: HYPERURICAEMIA
     Route: 065
  14. ISOPHANE INSULIN [Suspect]
     Active Substance: INSULIN NOS
     Indication: TYPE 2 DIABETES MELLITUS
     Dosage: 38 + 26 U
     Route: 065
  15. SITAGLIPTIN [Suspect]
     Active Substance: SITAGLIPTIN
     Indication: PRODUCT USED FOR UNKNOWN INDICATION
     Route: 065
  16. INSULIN [Concomitant]
     Active Substance: INSULIN NOS
     Indication: PRODUCT USED FOR UNKNOWN INDICATION
     Dosage: UNK
     Route: 065
  17. LOSARTAN. [Suspect]
     Active Substance: LOSARTAN
     Indication: PRODUCT USED FOR UNKNOWN INDICATION
     Route: 065
  18. VENLAFAXINE [Suspect]
     Active Substance: VENLAFAXINE HYDROCHLORIDE
     Indication: PRODUCT USED FOR UNKNOWN INDICATION
     Route: 065

REACTIONS (18)
  - Cholestasis [Recovered/Resolved]
  - Cardiac murmur [Recovering/Resolving]
  - Mixed liver injury [Recovered/Resolved]
  - Condition aggravated [Unknown]
  - Hepatitis [Recovering/Resolving]
  - Hepatocellular injury [Recovering/Resolving]
  - Oedema peripheral [Recovering/Resolving]
  - Mucosal dryness [Recovering/Resolving]
  - Drug-induced liver injury [Recovered/Resolved]
  - Hyperkalaemia [Recovered/Resolved]
  - Hepatotoxicity [Recovering/Resolving]
  - Hyperglycaemia [Recovered/Resolved]
  - Metabolic acidosis [Recovering/Resolving]
  - Pruritus [Unknown]
  - Urine output decreased [Recovered/Resolved]
  - Hepatic necrosis [Recovered/Resolved]
  - Metabolic acidosis [Recovered/Resolved]
  - Cholestatic liver injury [Recovered/Resolved]
